FAERS Safety Report 4382580-8 (Version None)
Quarter: 2004Q2

REPORT INFORMATION
  Report Type: 
  Country: None (occurrence: None)
  Receive Date: 20040622
  Receipt Date: 20040610
  Transmission Date: 20050107
  Serious: Yes (Other)
  Sender: FDA-Public Use
  Company Number: FR-ROCHE-370702

PATIENT
  Sex: Male

DRUGS (5)
  1. RIBAVIRIN [Suspect]
     Route: 065
     Dates: start: 19990915, end: 20000415
  2. INTERFERON ALFA [Concomitant]
     Dates: start: 19990915
  3. STAVUDINE [Concomitant]
     Dates: start: 19950915
  4. DIDANOSINE [Concomitant]
     Dates: start: 19950915
  5. LAMIVUDINE [Concomitant]
     Dates: start: 19950915

REACTIONS (7)
  - BLOOD AMYLASE INCREASED [None]
  - BLOOD LACTIC ACID INCREASED [None]
  - GAMMA-GLUTAMYLTRANSFERASE INCREASED [None]
  - LACTATE PYRUVATE RATIO INCREASED [None]
  - MITOCHONDRIAL TOXICITY [None]
  - MULTI-ORGAN DISORDER [None]
  - WEIGHT DECREASED [None]
